FAERS Safety Report 8774075 (Version 7)
Quarter: 2013Q3

REPORT INFORMATION
  Report Type: Spontaneous
  Country: US (occurrence: US)
  Receive Date: 20120908
  Receipt Date: 20130723
  Transmission Date: 20140515
  Serious: Yes (Hospitalization, Other)
  Sender: FDA-Public Use
  Company Number: US-009507513-1208USA012460

PATIENT
  Sex: Female
  Weight: 86.17 kg

DRUGS (2)
  1. FOSAMAX [Suspect]
     Indication: OSTEOPOROSIS
     Dosage: 70 MG, UNK
     Route: 048
     Dates: start: 1997, end: 200801
  2. FOSAMAX PLUS D [Suspect]
     Indication: OSTEOPOROSIS
     Dosage: 70MG/2800 IU, UNK
     Route: 048
     Dates: start: 20080115, end: 201005

REACTIONS (35)
  - Femur fracture [Unknown]
  - Removal of internal fixation [Unknown]
  - Knee arthroplasty [Unknown]
  - Open reduction of fracture [Unknown]
  - Foot fracture [Unknown]
  - Medical device implantation [Unknown]
  - Medical device removal [Unknown]
  - Rotator cuff repair [Unknown]
  - Osteoarthritis [Unknown]
  - Fall [Unknown]
  - Impaired healing [Unknown]
  - Fall [Unknown]
  - Low turnover osteopathy [Unknown]
  - Tendon transfer [Unknown]
  - Synovectomy [Unknown]
  - Tendon operation [Unknown]
  - Fracture delayed union [Unknown]
  - Spinal disorder [Unknown]
  - Bone disorder [Unknown]
  - Spinal osteoarthritis [Unknown]
  - Intervertebral disc degeneration [Unknown]
  - Scoliosis [Not Recovered/Not Resolved]
  - Arthropathy [Unknown]
  - Rotator cuff syndrome [Unknown]
  - Osteoarthritis [Unknown]
  - Tendon disorder [Unknown]
  - Hypertension [Unknown]
  - Osteoarthritis [Unknown]
  - Depression [Unknown]
  - Hypertonic bladder [Unknown]
  - Pain [Unknown]
  - Asthma [Unknown]
  - Fungal infection [Unknown]
  - Adverse event [Unknown]
  - Gastrooesophageal reflux disease [Unknown]
